FAERS Safety Report 10549557 (Version 1)
Quarter: 2014Q4

REPORT INFORMATION
  Report Type: Spontaneous
  Country: US (occurrence: None)
  Receive Date: 20141020
  Receipt Date: 20141020
  Transmission Date: 20150529
  Serious: No
  Sender: FDA-Public Use
  Company Number: AEGR000596

PATIENT
  Age: 60 Year
  Sex: Female
  Weight: 50.8 kg

DRUGS (15)
  1. CHLORTHALIDONE (CHLORTALIDONE) [Concomitant]
     Active Substance: CHLORTHALIDONE
  2. PATANASE (OLOPATADINE HYDROCHLORIDE) AEROSOL (SPRAY AND INHALATION) [Concomitant]
  3. CALCIUM + D (CALCIUM CARBONATE, COLECALCIFEROL) [Concomitant]
  4. METAMUCIL (PLANTAGO OVATA) [Concomitant]
  5. JUXTAPID [Suspect]
     Active Substance: LOMITAPIDE MESYLATE
     Indication: HYPERCHOLESTEROLAEMIA
     Route: 048
     Dates: start: 20131115
  6. LISINOPRIL (LISINOPRIL) [Concomitant]
     Active Substance: LISINOPRIL
  7. VITAMIN C [Concomitant]
     Active Substance: ASCORBIC ACID
  8. VITAMIN B (VITAMIN B COMPLEX) [Concomitant]
  9. GUAIFENESIN (GUAIFENESIN) [Concomitant]
  10. AURALGAN (BENZOCAINE, PHENAZONE) [Concomitant]
  11. RELPAX [Concomitant]
     Active Substance: ELETRIPTAN HYDROBROMIDE
  12. NORFLEX (ORPHENADRINE CITRATE) [Concomitant]
  13. PERCOCET (OXYCODONE HYDROCHLORIDE, PARACETAMOL) [Concomitant]
  14. LYSINE (LYSINE HYDROCHLORIDE) [Concomitant]
  15. MULTIVITAMIN (VITAMINS NOS) [Concomitant]
     Active Substance: VITAMINS

REACTIONS (6)
  - Mood swings [None]
  - Irritability [None]
  - Migraine [None]
  - Off label use [None]
  - Dizziness [None]
  - Headache [None]

NARRATIVE: CASE EVENT DATE: 201311
